FAERS Safety Report 12509611 (Version 1)
Quarter: 2016Q2

REPORT INFORMATION
  Report Type: Spontaneous
  Country: PH (occurrence: PH)
  Receive Date: 20160629
  Receipt Date: 20160629
  Transmission Date: 20160815
  Serious: Yes (Hospitalization)
  Sender: FDA-Public Use
  Company Number: PH-JNJFOC-20160616820

PATIENT
  Age: 53 Year
  Sex: Female

DRUGS (5)
  1. DOXORUBICIN HYDROCHLORIDE. [Suspect]
     Active Substance: DOXORUBICIN HYDROCHLORIDE
     Indication: CASTLEMAN^S DISEASE
     Route: 065
  2. RITUXIMAB [Interacting]
     Active Substance: RITUXIMAB
     Indication: CASTLEMAN^S DISEASE
     Route: 065
  3. VINCRISTINE [Interacting]
     Active Substance: VINCRISTINE
     Indication: CASTLEMAN^S DISEASE
     Route: 065
  4. PREDNISOLONE. [Interacting]
     Active Substance: PREDNISOLONE
     Indication: CASTLEMAN^S DISEASE
     Route: 065
  5. CYCLOPHOSPHAMIDE. [Interacting]
     Active Substance: CYCLOPHOSPHAMIDE
     Indication: CASTLEMAN^S DISEASE
     Route: 065

REACTIONS (5)
  - Off label use [Unknown]
  - Anaemia [Unknown]
  - Product use issue [Unknown]
  - Drug interaction [Unknown]
  - Hospitalisation [Unknown]
